FAERS Safety Report 8243550-2 (Version None)
Quarter: 2012Q1

REPORT INFORMATION
  Report Type: 
  Country: None (occurrence: None)
  Receive Date: 20120329
  Receipt Date: 20120320
  Transmission Date: 20120608
  Serious: Yes (Hospitalization, Other)
  Sender: FDA-Public Use
  Company Number: PHHY2012FR025373

PATIENT
  Sex: Female
  Weight: 42 kg

DRUGS (13)
  1. DEPAKENE [Concomitant]
     Dosage: UNK UKN, UNK
  2. SPIRIVA [Concomitant]
     Dosage: UNK UKN, UNK
  3. BONIVA [Concomitant]
     Dosage: UNK UKN, UNK
  4. CYMBALTA [Concomitant]
     Dosage: UNK UKN, UNK
  5. TEGRETOL [Suspect]
     Indication: EPILEPSY
     Dosage: 400 MG AT 1 DF, BID
     Route: 048
     Dates: end: 20111017
  6. TEGRETOL [Suspect]
     Dosage: UNK UKN, UNK
     Route: 048
     Dates: start: 20111021
  7. ISOPTIN [Concomitant]
     Dosage: UNK UKN, UNK
  8. ASPIRIN [Concomitant]
     Dosage: UNK UKN, UNK
  9. MIANSERIN [Concomitant]
     Dosage: UNK UKN, UNK
  10. EPTAVIT [Concomitant]
     Dosage: UNK UKN, UNK
  11. SYMBICORT [Concomitant]
     Dosage: UNK UKN, UNK
  12. PERINDOPRIL ERBUMINE [Concomitant]
     Dosage: UNK UKN, UNK
  13. EZETIMIBE [Concomitant]
     Dosage: UNK UKN, UNK

REACTIONS (9)
  - VITAMIN D DECREASED [None]
  - FALL [None]
  - MALAISE [None]
  - ASTHENIA [None]
  - BODY TEMPERATURE DECREASED [None]
  - HYPONATRAEMIA [None]
  - BLOOD ALBUMIN DECREASED [None]
  - SOMNOLENCE [None]
  - ANTICONVULSANT DRUG LEVEL INCREASED [None]
